FAERS Safety Report 4860140-X (Version None)
Quarter: 2005Q4

REPORT INFORMATION
  Report Type: 
  Country: None (occurrence: None)
  Receive Date: 20051219
  Receipt Date: 20050902
  Transmission Date: 20060501
  Serious: Yes (Death, Hospitalization)
  Sender: FDA-Public Use
  Company Number: US-MERCK-0509USA00701

PATIENT
  Age: 76 Year
  Sex: Female
  Weight: 73 kg

DRUGS (26)
  1. VIOXX [Suspect]
     Indication: OSTEOARTHRITIS
     Route: 048
     Dates: start: 19991001, end: 20030701
  2. AMITRIPTYLIN [Concomitant]
     Route: 065
  3. TICLOPIDINE HYDROCHLORIDE [Concomitant]
     Route: 065
  4. ZITHROMAX [Concomitant]
     Route: 065
  5. CARDEC DM [Concomitant]
     Route: 065
  6. PRILOSEC [Concomitant]
     Route: 065
  7. DIOVAN [Concomitant]
     Route: 065
  8. TOPROL-XL [Concomitant]
     Route: 065
  9. POTASSIUM (UNSPECIFIED) [Concomitant]
     Route: 065
  10. LORATADINE [Concomitant]
     Route: 065
  11. DIPROLENE [Concomitant]
     Route: 065
  12. PSEUDOVENT [Concomitant]
     Route: 065
  13. PEN-VEE K [Concomitant]
     Route: 065
  14. PEROCAN [Concomitant]
     Route: 065
  15. LEVAQUIN [Concomitant]
     Route: 065
  16. PROMETHAZINE W/DM [Concomitant]
     Route: 065
  17. FOLTRIN [Concomitant]
     Route: 065
  18. NEXIUM [Concomitant]
     Route: 065
  19. AUGMENTIN [Concomitant]
     Route: 065
  20. ULTRAM [Concomitant]
     Route: 065
  21. PLAVIX [Concomitant]
     Route: 065
  22. RHINOCORT [Concomitant]
     Route: 065
  23. COUMADIN [Concomitant]
     Route: 065
  24. PRAVACHOL [Concomitant]
     Route: 065
  25. CARISOPRODOL [Concomitant]
     Route: 065
  26. ANDEHIST DM [Concomitant]
     Route: 065

REACTIONS (14)
  - ARTERIOSCLEROSIS [None]
  - ARTHRALGIA [None]
  - BACK PAIN [None]
  - CARDIAC ARREST [None]
  - CEREBROVASCULAR ACCIDENT [None]
  - DIASTOLIC DYSFUNCTION [None]
  - DIPLOPIA [None]
  - ELECTROMECHANICAL DISSOCIATION [None]
  - GASTROINTESTINAL HAEMORRHAGE [None]
  - GASTROOESOPHAGEAL REFLUX DISEASE [None]
  - HYPERCHOLESTEROLAEMIA [None]
  - HYPERTENSION [None]
  - MYOCARDIAL INFARCTION [None]
  - PERIPHERAL VASCULAR DISORDER [None]
